FAERS Safety Report 19703602 (Version 2)
Quarter: 2021Q3

REPORT INFORMATION
  Report Type: Spontaneous
  Country: BR (occurrence: BR)
  Receive Date: 20210816
  Receipt Date: 20210831
  Transmission Date: 20211014
  Serious: Yes (Other)
  Sender: FDA-Public Use
  Company Number: BR-009507513-2108BRA003989

PATIENT
  Age: 70 Year
  Sex: Female

DRUGS (6)
  1. GLIFAGE [Concomitant]
     Active Substance: METFORMIN HYDROCHLORIDE
     Dosage: UNK
  2. PNEUMOCOCCAL VACCINE, POLYVALENT (23?VALENT) [Suspect]
     Active Substance: PNEUMOCOCCAL VACCINE, POLYVALENT 23
     Indication: PROPHYLAXIS
  3. CORONAVAC [Concomitant]
     Active Substance: INVESTIGATIONAL PRODUCT
     Dosage: UNK
  4. JANUVIA [Suspect]
     Active Substance: SITAGLIPTIN PHOSPHATE
     Dosage: UNK
     Route: 048
     Dates: start: 2017
  5. LOSARTAN POTASSIUM. [Suspect]
     Active Substance: LOSARTAN POTASSIUM
     Indication: HYPERTENSION
     Dosage: UNK
     Route: 048
  6. ROSUVASTATIN. [Concomitant]
     Active Substance: ROSUVASTATIN
     Dosage: UNK

REACTIONS (3)
  - Cholelithiasis [Unknown]
  - Therapeutic response unexpected [Unknown]
  - Ill-defined disorder [Unknown]
